FAERS Safety Report 16779803 (Version 1)
Quarter: 2019Q3

REPORT INFORMATION
  Report Type: Spontaneous
  Country: US (occurrence: US)
  Receive Date: 20190717
  Receipt Date: 20190717
  Transmission Date: 20191005
  Serious: No
  Sender: FDA-Public Use
  Company Number: None

PATIENT
  Sex: Female

DRUGS (4)
  1. GANIRELIX [Concomitant]
     Active Substance: GANIRELIX
  2. MENOPUR [Concomitant]
     Active Substance: FOLLITROPIN\LUTEINIZING HORMONE
  3. FOLLITIN AQ [Concomitant]
  4. ESTRADIOL TRANSDERMAL SYSTEM [Suspect]
     Active Substance: ESTRADIOL
     Indication: INFERTILITY
     Route: 061
     Dates: start: 20190524

REACTIONS (1)
  - Fatigue [None]
